FAERS Safety Report 21576362 (Version 2)
Quarter: 2022Q4

REPORT INFORMATION
  Report Type: Spontaneous
  Country: JP (occurrence: JP)
  Receive Date: 20221110
  Receipt Date: 20221130
  Transmission Date: 20230113
  Serious: Yes (Other)
  Sender: FDA-Public Use
  Company Number: JP-JNJFOC-20221112643

PATIENT
  Age: 4 Decade

DRUGS (6)
  1. EPOPROSTENOL [Suspect]
     Active Substance: EPOPROSTENOL
     Indication: Mixed connective tissue disease
     Route: 041
  2. EPOPROSTENOL [Suspect]
     Active Substance: EPOPROSTENOL
     Route: 041
  3. EPOPROSTENOL [Suspect]
     Active Substance: EPOPROSTENOL
     Route: 041
  4. OPSUMIT [Suspect]
     Active Substance: MACITENTAN
     Indication: Mixed connective tissue disease
     Route: 048
  5. TADALAFIL [Concomitant]
     Active Substance: TADALAFIL
     Route: 048
  6. OXYGEN [Concomitant]
     Active Substance: OXYGEN
     Route: 055

REACTIONS (2)
  - Pulmonary haemorrhage [Unknown]
  - Off label use [Unknown]
